FAERS Safety Report 12411097 (Version 1)
Quarter: 2016Q2

REPORT INFORMATION
  Report Type: Spontaneous
  Country: US (occurrence: None)
  Receive Date: 20160526
  Receipt Date: 20160526
  Transmission Date: 20160815
  Serious: Yes (Hospitalization, Other)
  Sender: FDA-Public Use
  Company Number: None

PATIENT
  Sex: Female

DRUGS (15)
  1. HYDROCHLOROTHIAZINE [Concomitant]
  2. VITAMIN B12 [Concomitant]
     Active Substance: CYANOCOBALAMIN
  3. CALCIUM [Concomitant]
     Active Substance: CALCIUM
  4. AMLODIPINE [Concomitant]
     Active Substance: AMLODIPINE BESYLATE
  5. TYLENOL [Suspect]
     Active Substance: ACETAMINOPHEN
  6. SENNA LAXATIVE [Concomitant]
     Active Substance: SENNOSIDES
  7. PRILOSEC [Concomitant]
     Active Substance: OMEPRAZOLE MAGNESIUM
  8. IRON [Concomitant]
     Active Substance: IRON
  9. METHANX (B-6) [Concomitant]
  10. VITAMINS [Concomitant]
     Active Substance: VITAMINS
  11. PREDNISONE. [Concomitant]
     Active Substance: PREDNISONE
  12. D-3 [Concomitant]
     Active Substance: CHOLECALCIFEROL
  13. PROLIA [Suspect]
     Active Substance: DENOSUMAB
     Indication: OSTEOPOROSIS PROPHYLAXIS
     Dosage: ONE INJECTION ONCE INJECTION
  14. LEVOTHYROXIN [Concomitant]
     Active Substance: LEVOTHYROXINE
  15. POTASSIUM [Concomitant]
     Active Substance: POTASSIUM

REACTIONS (2)
  - Cartilage injury [None]
  - Pain [None]

NARRATIVE: CASE EVENT DATE: 20150724
